FAERS Safety Report 5800166-2 (Version None)
Quarter: 2008Q3

REPORT INFORMATION
  Report Type: 
  Country: None (occurrence: None)
  Receive Date: 20080703
  Receipt Date: 20080625
  Transmission Date: 20090109
  Serious: Yes (Life-Threatening)
  Sender: FDA-Public Use
  Company Number: FR-AVENTIS-200812411FR

PATIENT
  Age: 94 Year
  Sex: Female
  Weight: 70 kg

DRUGS (9)
  1. TAVANIC [Suspect]
     Route: 048
     Dates: start: 20080307
  2. LOVENOX [Suspect]
     Indication: PROPHYLAXIS
     Route: 058
     Dates: start: 20080305
  3. LASIX [Suspect]
     Route: 048
     Dates: start: 20060801
  4. ROCEPHIN [Suspect]
     Dates: start: 20080307
  5. ATARAX [Concomitant]
     Route: 048
     Dates: start: 20060801
  6. ACETAMINOPHEN [Concomitant]
     Route: 048
     Dates: start: 20060801
  7. CLONAZEPAM [Concomitant]
     Route: 048
     Dates: start: 20060801
  8. TOPALGIC [Concomitant]
     Route: 048
     Dates: start: 20080306, end: 20080307
  9. MONOCRIXO [Concomitant]
     Route: 048
     Dates: start: 20080306

REACTIONS (1)
  - CARDIAC ARREST [None]
